FAERS Safety Report 25699701 (Version 1)
Quarter: 2025Q3

REPORT INFORMATION
  Report Type: Spontaneous
  Country: US (occurrence: US)
  Receive Date: 20250819
  Receipt Date: 20250819
  Transmission Date: 20251021
  Serious: No
  Sender: CHATTEM
  Company Number: US-OPELLA-2025OHG025019

PATIENT
  Age: 5 Year
  Sex: Male

DRUGS (3)
  1. FEXOFENADINE [Suspect]
     Active Substance: FEXOFENADINE HYDROCHLORIDE
     Indication: Alopecia areata
  2. topical minoxidil [Concomitant]
     Indication: Alopecia areata
     Route: 061
  3. DEXAMETHASONE [Concomitant]
     Active Substance: DEXAMETHASONE
     Indication: Alopecia areata

REACTIONS (2)
  - Off label use [Unknown]
  - No adverse event [Unknown]
